FAERS Safety Report 5493981-9 (Version None)
Quarter: 2007Q4

REPORT INFORMATION
  Report Type: 
  Country: None (occurrence: None)
  Receive Date: 20071023
  Receipt Date: 20071011
  Transmission Date: 20080405
  Serious: Yes (Hospitalization)
  Sender: FDA-Public Use
  Company Number: JP-PFIZER INC-2007062003

PATIENT
  Sex: Female
  Weight: 54.6 kg

DRUGS (3)
  1. SOLU-MEDROL [Suspect]
     Indication: MULTIPLE SCLEROSIS
     Route: 042
  2. REPLAS 3 [Suspect]
     Indication: MULTIPLE SCLEROSIS
     Route: 042
  3. TAGAMET FOR INJECTION [Concomitant]
     Dosage: DAILY DOSE:200MG
     Route: 042

REACTIONS (3)
  - ENTERITIS INFECTIOUS [None]
  - INSOMNIA [None]
  - IRRITABLE BOWEL SYNDROME [None]
